FAERS Safety Report 6005091-2 (Version None)
Quarter: 2008Q4

REPORT INFORMATION
  Report Type: 
  Country: None (occurrence: None)
  Receive Date: 20081215
  Receipt Date: 20081130
  Transmission Date: 20090506
  Serious: Yes (Hospitalization)
  Sender: FDA-Public Use
  Company Number: KV200800715

PATIENT
  Age: 79 Year
  Sex: Male
  Weight: 88.4 kg

DRUGS (3)
  1. ISOSORBIDE MONONITRATE [Suspect]
     Indication: CHEST PAIN
     Dosage: 60 MG, QD, ORAL
     Route: 048
  2. PLAVIX [Concomitant]
  3. PREVACID [Concomitant]

REACTIONS (5)
  - CONDITION AGGRAVATED [None]
  - CORONARY ARTERY EMBOLISM [None]
  - GROIN PAIN [None]
  - PAIN IN EXTREMITY [None]
  - PRODUCT QUALITY ISSUE [None]
